FAERS Safety Report 13266972 (Version 1)
Quarter: 2017Q1

REPORT INFORMATION
  Report Type: Spontaneous
  Country: US (occurrence: US)
  Receive Date: 20170223
  Receipt Date: 20170223
  Transmission Date: 20170428
  Serious: Yes (Hospitalization)
  Sender: FDA-Public Use
  Company Number: None

PATIENT
  Age: 78 Year
  Sex: Male

DRUGS (8)
  1. ZYTIGA [Suspect]
     Active Substance: ABIRATERONE ACETATE
     Indication: PROSTATE CANCER
     Route: 048
     Dates: start: 20161212
  2. AMIODARONE [Concomitant]
     Active Substance: AMIODARONE
  3. ADVAIR DISK [Concomitant]
  4. GENERLAC [Concomitant]
     Active Substance: LACTULOSE
  5. POLYETH GLY [Concomitant]
  6. ALLOPURINOL. [Concomitant]
     Active Substance: ALLOPURINOL
  7. CARVEDILOL. [Concomitant]
     Active Substance: CARVEDILOL
  8. PROAIR HFA [Concomitant]
     Active Substance: ALBUTEROL SULFATE

REACTIONS (1)
  - Pneumonia [None]

NARRATIVE: CASE EVENT DATE: 20170221
